FAERS Safety Report 9287372 (Version 1)
Quarter: 2013Q2

REPORT INFORMATION
  Report Type: Spontaneous
  Country: MX (occurrence: MX)
  Receive Date: 20130514
  Receipt Date: 20130514
  Transmission Date: 20140414
  Serious: Yes (Death, Hospitalization)
  Sender: FDA-Public Use
  Company Number: MX-ROCHE-1222764

PATIENT
  Sex: Female

DRUGS (2)
  1. PERJETA [Suspect]
     Indication: BREAST CANCER METASTATIC
     Route: 042
     Dates: start: 201304
  2. HERCEPTIN [Concomitant]
     Indication: BREAST CANCER METASTATIC
     Route: 042

REACTIONS (6)
  - Hepatic failure [Fatal]
  - Dehydration [Unknown]
  - Diarrhoea [Unknown]
  - Blood bilirubin abnormal [Unknown]
  - Fatigue [Unknown]
  - Ascites [Unknown]
